FAERS Safety Report 17486788 (Version 1)
Quarter: 2020Q1

REPORT INFORMATION
  Report Type: Spontaneous
  Country: US (occurrence: US)
  Receive Date: 20200303
  Receipt Date: 20200303
  Transmission Date: 20200409
  Serious: No
  Sender: FDA-Public Use
  Company Number: US-GLENMARK PHARMACEUTICALS-2020GMK045316

PATIENT

DRUGS (1)
  1. NORETHINDRONE ACETATE TABLETS USP, 5 MG [Suspect]
     Active Substance: NORETHINDRONE ACETATE
     Indication: PRODUCT USED FOR UNKNOWN INDICATION
     Dosage: UNK [START DATE: YEARS AGO (UNSPECIFIED)]
     Route: 065

REACTIONS (1)
  - Allergic reaction to excipient [Unknown]
